FAERS Safety Report 7072628-4 (Version None)
Quarter: 2010Q4

REPORT INFORMATION
  Report Type: 
  Country: None (occurrence: None)
  Receive Date: 20101029
  Receipt Date: 20100222
  Transmission Date: 20110411
  Serious: No
  Sender: FDA-Public Use
  Company Number: A0845703A

PATIENT
  Age: 72 Year
  Sex: Female

DRUGS (6)
  1. ADVAIR DISKUS 100/50 [Suspect]
     Indication: ASTHMA
     Dosage: 1PUFF PER DAY
     Route: 055
     Dates: end: 20100221
  2. FLONASE [Concomitant]
  3. NEXIUM [Concomitant]
  4. VERAMYST [Concomitant]
  5. OSTEOBIFLEX [Concomitant]
  6. VITAMIN B3 [Concomitant]

REACTIONS (1)
  - ERYTHEMA [None]
